FAERS Safety Report 7682046-3 (Version None)
Quarter: 2011Q3

REPORT INFORMATION
  Report Type: 
  Country: None (occurrence: None)
  Receive Date: 20110809
  Receipt Date: 20110728
  Transmission Date: 20111222
  Serious: Yes (Hospitalization, Other)
  Sender: FDA-Public Use
  Company Number: DSA_46872_2011

PATIENT
  Sex: Female

DRUGS (9)
  1. EPINASTINE HYDROCHLORIDE [Suspect]
     Indication: ANALGESIC ASTHMA SYNDROME
     Dosage: (20 MG QD ORAL)
     Route: 048
     Dates: start: 20090420, end: 20091125
  2. IBUPROFEN [Concomitant]
  3. ETHENZAMIDE [Concomitant]
  4. GASMOTIN (GASMOTIN-MOSAPRIDE CITRATE) 5 MG (NOT SPECIFIED) [Suspect]
     Indication: PRODUCT USED FOR UNKNOWN INDICATION
     Dosage: (5 MG TID ORAL)
     Route: 048
     Dates: start: 20090420, end: 20091125
  5. ASPIRIN [Concomitant]
  6. DILTIAZEM HCL [Suspect]
     Indication: HYPERTENSION
     Dosage: (100 MG QD ORAL)
     Route: 048
     Dates: start: 20090820, end: 20091125
  7. CEFDINIR [Suspect]
     Indication: ANALGESIC INTERVENTION SUPPORTIVE THERAPY
     Dosage: (300 MG, DAILY)
  8. ZOLPIDEM TARTRATE [Suspect]
     Indication: PRODUCT USED FOR UNKNOWN INDICATION
     Dosage: (10 MG QD ORAL)
     Route: 048
     Dates: start: 20081209, end: 20091125
  9. OLMESARTAN MEDOXOMIL [Suspect]
     Indication: HYPERTENSION
     Dosage: (10 MG BID ORAL)
     Route: 048
     Dates: start: 20090820, end: 20091125

REACTIONS (10)
  - PERIODONTITIS [None]
  - ANALGESIC ASTHMA SYNDROME [None]
  - BLOOD LACTATE DEHYDROGENASE INCREASED [None]
  - LIVER DISORDER [None]
  - TOOTHACHE [None]
  - ALANINE AMINOTRANSFERASE INCREASED [None]
  - GAMMA-GLUTAMYLTRANSFERASE INCREASED [None]
  - BLOOD ALKALINE PHOSPHATASE INCREASED [None]
  - GINGIVAL BLEEDING [None]
  - ASPARTATE AMINOTRANSFERASE INCREASED [None]
